FAERS Safety Report 18941339 (Version 1)
Quarter: 2021Q1

REPORT INFORMATION
  Report Type: Spontaneous
  Country: US (occurrence: US)
  Receive Date: 20210225
  Receipt Date: 20210225
  Transmission Date: 20210420
  Serious: No
  Sender: FDA-Public Use
  Company Number: NVSC2021US044813

PATIENT
  Age: 66 Year

DRUGS (1)
  1. VOLTAREN [Suspect]
     Active Substance: DICLOFENAC SODIUM
     Indication: PAIN
     Dosage: UNK
     Route: 065
     Dates: start: 20210218, end: 20210218

REACTIONS (3)
  - Off label use [Unknown]
  - Product prescribing error [Unknown]
  - Product administered at inappropriate site [Unknown]
